FAERS Safety Report 10945981 (Version 1)
Quarter: 2015Q1

REPORT INFORMATION
  Report Type: Spontaneous
  Country: US (occurrence: None)
  Receive Date: 20150212
  Receipt Date: 20150212
  Transmission Date: 20150721
  Serious: Yes (Hospitalization)
  Sender: FDA-Public Use
  Company Number: TPA2011A00111

PATIENT
  Age: 74 Year
  Sex: Male
  Weight: 75.3 kg

DRUGS (6)
  1. VIAGRA [Concomitant]
     Active Substance: SILDENAFIL CITRATE
  2. METFORMIN [Concomitant]
     Active Substance: METFORMIN HYDROCHLORIDE
  3. AZOR [Concomitant]
     Active Substance: AMLODIPINE BESYLATE\OLMESARTAN MEDOXOMIL
  4. ULORIC [Suspect]
     Active Substance: FEBUXOSTAT
     Indication: NEPHROLITHIASIS
     Route: 048
     Dates: start: 20110707, end: 201112
  5. SIMVASTATIN. [Concomitant]
     Active Substance: SIMVASTATIN
  6. ARANESP [Concomitant]
     Active Substance: DARBEPOETIN ALFA

REACTIONS (5)
  - Lacunar infarction [None]
  - Fall [None]
  - Nervous system disorder [None]
  - Balance disorder [None]
  - Muscular weakness [None]

NARRATIVE: CASE EVENT DATE: 20111024
